FAERS Safety Report 4345597-5 (Version None)
Quarter: 2004Q2

REPORT INFORMATION
  Report Type: 
  Country: None (occurrence: None)
  Receive Date: 20040421
  Receipt Date: 20040412
  Transmission Date: 20050107
  Serious: Yes (Other)
  Sender: FDA-Public Use
  Company Number: 200411566BCC

PATIENT
  Age: 68 Year
  Sex: Female
  Weight: 78.4723 kg

DRUGS (5)
  1. ASPIRIN [Suspect]
     Indication: NASOPHARYNGITIS
     Dosage: 325 MG, QD, ORAL
     Route: 048
     Dates: start: 20040201
  2. ASPIRIN [Suspect]
     Indication: ANTICOAGULANT THERAPY
     Dosage: 81 MG, ONCE, ORAL
     Route: 048
     Dates: start: 20040412
  3. SYNTHROID [Concomitant]
  4. ADVAIR DISKUS 100/50 [Concomitant]
  5. PLAVIX [Concomitant]

REACTIONS (6)
  - AMNESIA [None]
  - ASTHMA [None]
  - BLOOD THYROID STIMULATING HORMONE INCREASED [None]
  - CHEST DISCOMFORT [None]
  - COMPUTERISED TOMOGRAM ABNORMAL [None]
  - TRANSIENT ISCHAEMIC ATTACK [None]
